FAERS Safety Report 4729481-0 (Version None)
Quarter: 2005Q3

REPORT INFORMATION
  Report Type: 
  Country: None (occurrence: None)
  Receive Date: 20050801
  Receipt Date: 20050722
  Transmission Date: 20060218
  Serious: Yes (Other)
  Sender: FDA-Public Use
  Company Number: US-MERCK-0507USA03860

PATIENT
  Sex: Female

DRUGS (2)
  1. VIOXX [Suspect]
     Route: 048
     Dates: start: 20010723, end: 20021114
  2. VIOXX [Suspect]
     Route: 048
     Dates: start: 20030516, end: 20040923

REACTIONS (1)
  - CEREBROVASCULAR ACCIDENT [None]
